FAERS Safety Report 16078549 (Version 1)
Quarter: 2019Q1

REPORT INFORMATION
  Report Type: Report from Study
  Country: MX (occurrence: MX)
  Receive Date: 20190315
  Receipt Date: 20190315
  Transmission Date: 20190418
  Serious: Yes (Death)
  Sender: FDA-Public Use
  Company Number: MX-SEATTLE GENETICS-2019SGN00711

PATIENT
  Age: 49 Year
  Sex: Male

DRUGS (1)
  1. BRENTUXIMAB VEDOTIN-MPI [Suspect]
     Active Substance: BRENTUXIMAB VEDOTIN
     Indication: HODGKIN^S DISEASE
     Dosage: 150 MILLIGRAM
     Route: 042
     Dates: start: 20190218, end: 20190218

REACTIONS (1)
  - Death [Fatal]
